FAERS Safety Report 17874946 (Version 1)
Quarter: 2020Q2

REPORT INFORMATION
  Report Type: Spontaneous
  Country: US (occurrence: US)
  Receive Date: 20200609
  Receipt Date: 20200609
  Transmission Date: 20200714
  Serious: No
  Sender: FDA-Public Use
  Company Number: US-PFIZER INC-2020223745

PATIENT
  Age: 66 Year

DRUGS (1)
  1. CELEBREX [Suspect]
     Active Substance: CELECOXIB
     Dosage: UNK, 2X/WEEK

REACTIONS (3)
  - Off label use [Unknown]
  - Malaise [Unknown]
  - Product use issue [Unknown]
